FAERS Safety Report 16893876 (Version 1)
Quarter: 2019Q4

REPORT INFORMATION
  Report Type: Spontaneous
  Country: US (occurrence: US)
  Receive Date: 20190813
  Receipt Date: 20190813
  Transmission Date: 20200122
  Serious: Yes (Hospitalization)
  Sender: FDA-Public Use
  Company Number: None

PATIENT
  Age: 46 Year
  Sex: Male
  Weight: 109 kg

DRUGS (1)
  1. CEPHALEXIN. [Suspect]
     Active Substance: CEPHALEXIN
     Indication: INFECTION
     Route: 048
     Dates: start: 20190514, end: 20190515

REACTIONS (5)
  - Pruritus [None]
  - Rash pruritic [None]
  - Erythema multiforme [None]
  - Rash maculo-papular [None]
  - Rash erythematous [None]

NARRATIVE: CASE EVENT DATE: 20190515
